FAERS Safety Report 12334685 (Version 1)
Quarter: 2016Q2

REPORT INFORMATION
  Report Type: Spontaneous
  Country: DE (occurrence: DE)
  Receive Date: 20160504
  Receipt Date: 20160504
  Transmission Date: 20160815
  Serious: Yes (Disabling)
  Sender: FDA-Public Use
  Company Number: DE-TEVA-655458GER

PATIENT
  Age: 60 Year
  Sex: Female

DRUGS (2)
  1. TRANCOLONG [Interacting]
     Active Substance: FLUPIRTINE MALEATE
     Indication: PAIN
     Route: 048
  2. MORPHINE HYDROCHLORIDE [Suspect]
     Active Substance: MORPHINE HYDROCHLORIDE
     Route: 048

REACTIONS (2)
  - Disability [Unknown]
  - Drug interaction [Unknown]
